FAERS Safety Report 10249631 (Version 1)
Quarter: 2014Q2

REPORT INFORMATION
  Report Type: Spontaneous
  Country: US (occurrence: None)
  Receive Date: 20140619
  Receipt Date: 20140619
  Transmission Date: 20141212
  Serious: Yes (Other)
  Sender: FDA-Public Use
  Company Number: None

PATIENT
  Age: 43 Year
  Sex: Female

DRUGS (1)
  1. ENBREL 50 AMGEN [Suspect]
     Route: 058
     Dates: start: 20080731, end: 20140618

REACTIONS (3)
  - Infection [None]
  - Rheumatoid arthritis [None]
  - Headache [None]
